FAERS Safety Report 10341171 (Version 2)
Quarter: 2014Q3

REPORT INFORMATION
  Report Type: Spontaneous
  Country: NL (occurrence: NL)
  Receive Date: 20140724
  Receipt Date: 20140724
  Transmission Date: 20150326
  Serious: Yes (Other)
  Sender: FDA-Public Use
  Company Number: NL-ABBVIE-12P-114-0931098-00

PATIENT
  Age: 52 Year
  Sex: Male

DRUGS (7)
  1. DEPAKINE CHRONO [Suspect]
     Active Substance: VALPROATE SODIUM
     Route: 048
     Dates: start: 201107, end: 201208
  2. AZARGA [Concomitant]
     Active Substance: BRINZOLAMIDE\TIMOLOL MALEATE
     Indication: PRODUCT USED FOR UNKNOWN INDICATION
  3. LEVETIRACETAM. [Concomitant]
     Active Substance: LEVETIRACETAM
     Indication: PRODUCT USED FOR UNKNOWN INDICATION
  4. FRISIUM [Suspect]
     Active Substance: CLOBAZAM
     Indication: EPILEPSY
     Route: 048
  5. TAMSULOSIN HYDROCHLORIDE. [Concomitant]
     Active Substance: TAMSULOSIN HYDROCHLORIDE
     Indication: PRODUCT USED FOR UNKNOWN INDICATION
  6. DEPAKINE CHRONO [Suspect]
     Active Substance: VALPROATE SODIUM
     Indication: EPILEPSY
     Route: 048
  7. DEPAKINE CHRONO [Suspect]
     Active Substance: VALPROATE SODIUM
     Dosage: TIME TO ONSET: FEW YEARS
     Route: 048

REACTIONS (7)
  - Tremor [Not Recovered/Not Resolved]
  - Epilepsy [Not Recovered/Not Resolved]
  - Dysphemia [Not Recovered/Not Resolved]
  - Disturbance in attention [Not Recovered/Not Resolved]
  - Memory impairment [Not Recovered/Not Resolved]
  - Somnolence [Not Recovered/Not Resolved]
  - Drug ineffective [Unknown]

NARRATIVE: CASE EVENT DATE: 20110701
